FAERS Safety Report 5272223-3 (Version None)
Quarter: 2007Q1

REPORT INFORMATION
  Report Type: 
  Country: None (occurrence: None)
  Receive Date: 20070322
  Receipt Date: 20070206
  Transmission Date: 20070707
  Serious: No
  Sender: FDA-Public Use
  Company Number: US-GLAXOSMITHKLINE-A0638563A

PATIENT
  Sex: Male

DRUGS (4)
  1. AVANDARYL [Suspect]
     Dosage: 1MG PER DAY
     Route: 048
  2. GLUCOPHAGE [Suspect]
     Dosage: 850MG TWICE PER DAY
     Route: 048
  3. UNKNOWN MEDICATION [Concomitant]
  4. HYZAAR [Concomitant]

REACTIONS (1)
  - BLOOD CREATININE INCREASED [None]
